FAERS Safety Report 11429435 (Version 2)
Quarter: 2015Q4

REPORT INFORMATION
  Report Type: Spontaneous
  Country: US (occurrence: US)
  Receive Date: 20150828
  Receipt Date: 20151009
  Transmission Date: 20160304
  Serious: Yes (Hospitalization, Other)
  Sender: FDA-Public Use
  Company Number: US-GLENMARK PHARMACEUTICALS INC, USA.-2015GMK018798

PATIENT

DRUGS (7)
  1. ZONISAMIDE. [Suspect]
     Active Substance: ZONISAMIDE
     Indication: SEIZURE
     Dosage: UNK UNK, QD
     Route: 048
     Dates: start: 2012
  2. ZONISAMIDE. [Suspect]
     Active Substance: ZONISAMIDE
     Dosage: ONE 100 MG CAPSULE AND TWO 25MG, QD
     Route: 048
     Dates: end: 20150223
  3. DEPAKOTE [Concomitant]
     Active Substance: DIVALPROEX SODIUM
     Indication: SEIZURE
     Dosage: UNK
  4. LAMICTAL [Concomitant]
     Active Substance: LAMOTRIGINE
     Indication: SEIZURE
     Dosage: UNK
     Dates: start: 2010
  5. TRILEPTAL [Concomitant]
     Active Substance: OXCARBAZEPINE
     Indication: SEIZURE
     Dosage: UNK
     Dates: start: 2011
  6. VIMPAT [Concomitant]
     Active Substance: LACOSAMIDE
     Indication: SEIZURE
     Dosage: UNK
     Dates: start: 2011
  7. BENADRYL [Concomitant]
     Active Substance: DIPHENHYDRAMINE HYDROCHLORIDE
     Indication: PRODUCT USED FOR UNKNOWN INDICATION
     Dosage: UNK

REACTIONS (19)
  - Hypertonic bladder [Recovered/Resolved]
  - Paranoia [Unknown]
  - Bladder cancer [Unknown]
  - Bipolar disorder [Unknown]
  - Bladder pain [Recovered/Resolved]
  - Hyperhidrosis [Unknown]
  - Drug ineffective [Unknown]
  - Menopause [Not Recovered/Not Resolved]
  - Gastritis [Recovered/Resolved]
  - Cognitive disorder [Not Recovered/Not Resolved]
  - Dry skin [Unknown]
  - Urinary tract infection [Recovered/Resolved]
  - Gingivitis [Recovered/Resolved]
  - Pollakiuria [Recovered/Resolved]
  - Alopecia [Recovered/Resolved]
  - Seizure [Unknown]
  - Sleep disorder [Unknown]
  - Conversion disorder [Unknown]
  - Depression [Unknown]

NARRATIVE: CASE EVENT DATE: 201410
